FAERS Safety Report 4294692-8 (Version None)
Quarter: 2004Q1

REPORT INFORMATION
  Report Type: 
  Country: None (occurrence: None)
  Receive Date: 20040213
  Receipt Date: 20030811
  Transmission Date: 20041129
  Serious: Yes (Death, Hospitalization, Other)
  Sender: FDA-Public Use
  Company Number: PHRM2003FR02165

PATIENT
  Age: 60 Year
  Sex: Male
  Weight: 70 kg

DRUGS (11)
  1. ESIDRIX [Suspect]
     Dosage: 25 MG, QD
     Route: 048
     Dates: end: 20030401
  2. CIBACENE [Suspect]
     Dosage: 10 MG, QD
     Route: 048
     Dates: end: 20030411
  3. ELISOR [Suspect]
     Dosage: 20 MG, QD
     Route: 048
     Dates: start: 20030307, end: 20030411
  4. ALLOPURINOL [Suspect]
     Dosage: 300 MG, QD
     Route: 048
     Dates: start: 20030327, end: 20030330
  5. LASILIX [Concomitant]
     Dosage: 40 MG, QD
     Route: 048
     Dates: end: 20030411
  6. ZYLORIC ^GLAXO WELLCOME^ [Suspect]
     Route: 048
     Dates: start: 20030307, end: 20030327
  7. SOLUPRED [Suspect]
  8. NOVOMIX [Suspect]
  9. TENORMIN [Suspect]
  10. INIPOMP [Concomitant]
  11. LESCOL [Concomitant]
     Dates: end: 20030307

REACTIONS (27)
  - ANAEMIA [None]
  - ANOREXIA [None]
  - ASTHENIA [None]
  - CHILLS [None]
  - COAGULOPATHY [None]
  - DERMATITIS BULLOUS [None]
  - DERMATITIS EXFOLIATIVE [None]
  - DIARRHOEA [None]
  - EOSINOPHILIA [None]
  - EXANTHEM [None]
  - HEPATITIS [None]
  - HYPEREOSINOPHILIC SYNDROME [None]
  - HYPERKERATOSIS PALMARIS AND PLANTARIS [None]
  - HYPERSENSITIVITY [None]
  - HYPOTENSION [None]
  - LYMPHOMA [None]
  - MUSCLE DISORDER [None]
  - NAIL DYSTROPHY [None]
  - PRURITUS GENERALISED [None]
  - PYREXIA [None]
  - RASH ERYTHEMATOUS [None]
  - RASH GENERALISED [None]
  - RENAL FAILURE [None]
  - SEPSIS [None]
  - STAPHYLOCOCCAL INFECTION [None]
  - SYSTEMIC INFLAMMATORY RESPONSE SYNDROME [None]
  - THROMBOCYTOPENIA [None]
